FAERS Safety Report 22288578 (Version 1)
Quarter: 2023Q2

REPORT INFORMATION
  Report Type: Spontaneous
  Country: US (occurrence: US)
  Receive Date: 20230505
  Receipt Date: 20230505
  Transmission Date: 20230722
  Serious: Yes (Hospitalization, Other)
  Sender: FDA-Public Use
  Company Number: US-GLAND PHARMA LIMITED-2023US001625

PATIENT

DRUGS (1)
  1. MILRINONE LACTATE [Suspect]
     Active Substance: MILRINONE LACTATE
     Indication: Right ventricular failure
     Dosage: 0.5 UG/MG/KG
     Route: 065

REACTIONS (3)
  - Aortic valve incompetence [Unknown]
  - Cardiogenic shock [Unknown]
  - Acute kidney injury [Recovered/Resolved]
